FAERS Safety Report 9808719 (Version 2)
Quarter: 2014Q1

REPORT INFORMATION
  Report Type: Spontaneous
  Country: US (occurrence: US)
  Receive Date: 20140110
  Receipt Date: 20140113
  Transmission Date: 20141002
  Serious: Yes (Hospitalization, Other)
  Sender: FDA-Public Use
  Company Number: US-TEVA-454565USA

PATIENT
  Sex: Male

DRUGS (1)
  1. FENTORA [Suspect]
     Dosage: 1 TABLET EVERY 8 HOURS

REACTIONS (9)
  - Drug withdrawal syndrome [Unknown]
  - Pain [Not Recovered/Not Resolved]
  - Intestinal resection [Recovered/Resolved]
  - Intestinal anastomosis [Unknown]
  - Adrenal insufficiency [Unknown]
  - Nausea [Unknown]
  - Fluid intake reduced [Unknown]
  - Dehydration [Unknown]
  - Diarrhoea [Unknown]
